FAERS Safety Report 9130864 (Version 1)
Quarter: 2013Q1

REPORT INFORMATION
  Report Type: Report from Study
  Country: US (occurrence: US)
  Receive Date: 20130301
  Receipt Date: 20130301
  Transmission Date: 20140127
  Serious: Yes (Other)
  Sender: FDA-Public Use
  Company Number: US-ELI_LILLY_AND_COMPANY-US201301008924

PATIENT
  Age: 16 Year
  Sex: Male
  Weight: 56.6 kg

DRUGS (6)
  1. DULOXETINE HYDROCHLORIDE [Suspect]
     Indication: GENERALISED ANXIETY DISORDER
     Dosage: UNK
     Dates: start: 20120803, end: 20121108
  2. DULOXETINE HYDROCHLORIDE [Suspect]
     Indication: GENERALISED ANXIETY DISORDER
     Dosage: 30 MG, QD
     Route: 048
     Dates: start: 20121109, end: 20121121
  3. DULOXETINE HYDROCHLORIDE [Suspect]
     Dosage: 60 MG, QD
     Route: 048
     Dates: start: 20121122, end: 20121220
  4. DULOXETINE HYDROCHLORIDE [Suspect]
     Dosage: 90 MG, QD
     Dates: start: 20121221, end: 20130117
  5. DULOXETINE HYDROCHLORIDE [Suspect]
     Dosage: 60 MG, QD
     Dates: start: 20130118, end: 20130125
  6. DULOXETINE HYDROCHLORIDE [Suspect]
     Dosage: 30 MG, QD
     Dates: start: 20130126, end: 20130201

REACTIONS (1)
  - Suicidal ideation [Recovered/Resolved]
